FAERS Safety Report 7693616-0 (Version None)
Quarter: 2011Q3

REPORT INFORMATION
  Report Type: 
  Country: None (occurrence: None)
  Receive Date: 20110819
  Receipt Date: 20110809
  Transmission Date: 20111222
  Serious: Yes (Hospitalization, Other)
  Sender: FDA-Public Use
  Company Number: US-BAXTER-2011BH025913

PATIENT
  Age: 68 Year
  Sex: Male

DRUGS (2)
  1. DIANEAL [Suspect]
     Indication: PERITONEAL DIALYSIS
     Route: 033
     Dates: end: 20110701
  2. DIANEAL [Suspect]
     Indication: PERITONEAL DIALYSIS
     Route: 033
     Dates: end: 20110701

REACTIONS (6)
  - PURULENT DISCHARGE [None]
  - INFECTIOUS PERITONITIS [None]
  - POSTOPERATIVE WOUND COMPLICATION [None]
  - SCAR [None]
  - BLOODY DISCHARGE [None]
  - FUNGAL SKIN INFECTION [None]
